FAERS Safety Report 7162501-5 (Version None)
Quarter: 2010Q4

REPORT INFORMATION
  Report Type: 
  Country: None (occurrence: None)
  Receive Date: 20101215
  Receipt Date: 20091115
  Transmission Date: 20110411
  Serious: Yes (Other)
  Sender: FDA-Public Use
  Company Number: IL-PFIZER INC-2009297722

PATIENT
  Age: 58 Year
  Sex: Female

DRUGS (1)
  1. LYRICA [Suspect]
     Indication: DIABETIC NEUROPATHY
     Dosage: 150 MG, 2X/DAY
     Dates: start: 20091108

REACTIONS (8)
  - ARTHROPATHY [None]
  - BLINDNESS TRANSIENT [None]
  - CONFUSIONAL STATE [None]
  - DYSKINESIA [None]
  - EYE OEDEMA [None]
  - GAIT DISTURBANCE [None]
  - MUSCULAR WEAKNESS [None]
  - SOMNOLENCE [None]
